FAERS Safety Report 12371876 (Version 3)
Quarter: 2016Q2

REPORT INFORMATION
  Report Type: Spontaneous
  Country: CA (occurrence: CA)
  Receive Date: 20160516
  Receipt Date: 20160518
  Transmission Date: 20160815
  Serious: Yes (Other)
  Sender: FDA-Public Use
  Company Number: CA-BAYER-2016-090231

PATIENT
  Age: 64 Year
  Sex: Female

DRUGS (2)
  1. AERIUS KIDS [Suspect]
     Active Substance: DESLORATADINE
     Dosage: 2 TEASPOONS AT NIGHT, TAKING IT FOR ABOUT 2 WEEKS NOW
     Dates: start: 201604
  2. CIPRO [Concomitant]
     Active Substance: CIPROFLOXACIN HYDROCHLORIDE
     Dosage: UNK

REACTIONS (3)
  - Ear infection [None]
  - Drug administered to patient of inappropriate age [None]
  - Insomnia [None]

NARRATIVE: CASE EVENT DATE: 2016
